FAERS Safety Report 15982184 (Version 2)
Quarter: 2021Q1

REPORT INFORMATION
  Report Type: Spontaneous
  Country: DE (occurrence: DE)
  Receive Date: 20190219
  Receipt Date: 20210322
  Transmission Date: 20210419
  Serious: Yes (Hospitalization, Other)
  Sender: FDA-Public Use
  Company Number: PHHY2019DE035471

PATIENT
  Age: 77 Year
  Sex: Female

DRUGS (13)
  1. CLOBETASOL [Suspect]
     Active Substance: CLOBETASOL
     Indication: STEVENS-JOHNSON SYNDROME
     Dosage: UNK
     Route: 061
  2. AMLODIPINE [Concomitant]
     Active Substance: AMLODIPINE BESYLATE
     Indication: PRODUCT USED FOR UNKNOWN INDICATION
     Dosage: UNK
     Route: 065
  3. PREDNICARBATE. [Suspect]
     Active Substance: PREDNICARBATE
     Indication: STEVENS-JOHNSON SYNDROME
     Dosage: UNK
     Route: 061
  4. SULTAMICILLIN [Suspect]
     Active Substance: SULTAMICILLIN
     Indication: PNEUMONIA
     Dosage: UNK
     Route: 065
  5. TILIDINE [Concomitant]
     Active Substance: TILIDINE
     Indication: PRODUCT USED FOR UNKNOWN INDICATION
     Dosage: UNK
     Route: 065
  6. TAVANIC [Concomitant]
     Active Substance: LEVOFLOXACIN
     Indication: ANTIBIOTIC THERAPY
     Dosage: 125 MG (EVERY 2 DAYS)
     Route: 065
  7. DEKRISTOL [Concomitant]
     Active Substance: CHOLECALCIFEROL
     Indication: PRODUCT USED FOR UNKNOWN INDICATION
     Dosage: UNK
     Route: 065
  8. BISOPROLOL [Concomitant]
     Active Substance: BISOPROLOL
     Indication: PRODUCT USED FOR UNKNOWN INDICATION
     Dosage: UNK
     Route: 065
  9. METHYLPREDNISOLONE. [Suspect]
     Active Substance: METHYLPREDNISOLONE
     Indication: STEVENS-JOHNSON SYNDROME
     Dosage: 60 MG
     Route: 048
  10. METHYLPREDNISOLONE. [Suspect]
     Active Substance: METHYLPREDNISOLONE
     Dosage: 60 MG
     Route: 065
  11. LEVOTHYROXINE SODIUM. [Concomitant]
     Active Substance: LEVOTHYROXINE SODIUM
     Indication: PRODUCT USED FOR UNKNOWN INDICATION
     Dosage: UNK
     Route: 065
  12. TOREM [Concomitant]
     Active Substance: TORSEMIDE
     Indication: PRODUCT USED FOR UNKNOWN INDICATION
     Dosage: UNK
     Route: 065
  13. PANTOPRAZOLE [Concomitant]
     Active Substance: PANTOPRAZOLE
     Indication: PRODUCT USED FOR UNKNOWN INDICATION
     Dosage: UNK
     Route: 065

REACTIONS (17)
  - Scab [Recovering/Resolving]
  - Drug eruption [Unknown]
  - Ecthyma [Recovering/Resolving]
  - Rash erythematous [Recovering/Resolving]
  - Skin hyperplasia [Recovering/Resolving]
  - Rash macular [Recovering/Resolving]
  - Skin lesion [Recovering/Resolving]
  - Skin necrosis [Recovering/Resolving]
  - C-reactive protein increased [Recovering/Resolving]
  - Interleukin level increased [Recovering/Resolving]
  - Skin erosion [Recovering/Resolving]
  - Perivascular dermatitis [Recovering/Resolving]
  - Skin plaque [Recovering/Resolving]
  - Skin ulcer [Recovering/Resolving]
  - Escherichia infection [Recovering/Resolving]
  - Bacteraemia [Recovered/Resolved]
  - White blood cell count increased [Recovering/Resolving]
